FAERS Safety Report 6690420-7 (Version None)
Quarter: 2010Q2

REPORT INFORMATION
  Report Type: 
  Country: None (occurrence: None)
  Receive Date: 20100421
  Receipt Date: 20091030
  Transmission Date: 20101027
  Serious: No
  Sender: FDA-Public Use
  Company Number: US-ASTRAZENECA-2009SE23628

PATIENT
  Sex: Female

DRUGS (2)
  1. CASODEX [Suspect]
     Route: 048
     Dates: start: 20090101
  2. KAPIDEX [Suspect]
     Indication: GASTROOESOPHAGEAL REFLUX DISEASE
     Route: 065
     Dates: start: 20090101

REACTIONS (3)
  - DRUG DISPENSING ERROR [None]
  - DRUG NAME CONFUSION [None]
  - FLUSHING [None]
